FAERS Safety Report 16896010 (Version 1)
Quarter: 2019Q4

REPORT INFORMATION
  Report Type: Report from Study
  Country: IT (occurrence: IT)
  Receive Date: 20191008
  Receipt Date: 20191008
  Transmission Date: 20200122
  Serious: Yes (Hospitalization)
  Sender: FDA-Public Use
  Company Number: IT-PFIZER INC-2019426989

PATIENT
  Age: 70 Year
  Sex: Male

DRUGS (2)
  1. UROKINASE [Interacting]
     Active Substance: UROKINASE
     Indication: ISCHAEMIA
     Dosage: 200000 KIU, TOTAL
     Route: 042
     Dates: start: 20190802, end: 20190802
  2. HEPARIN SODIUM. [Suspect]
     Active Substance: HEPARIN SODIUM
     Indication: THROMBOSIS PROPHYLAXIS
     Dosage: 5000 KIU, UNK
     Route: 058
     Dates: start: 20190802, end: 20190802

REACTIONS (3)
  - Injection site haematoma [Recovering/Resolving]
  - Shock haemorrhagic [Recovering/Resolving]
  - Drug interaction [Recovering/Resolving]

NARRATIVE: CASE EVENT DATE: 20190802
